FAERS Safety Report 5074061-3 (Version None)
Quarter: 2006Q3

REPORT INFORMATION
  Report Type: 
  Country: None (occurrence: None)
  Receive Date: 20060808
  Receipt Date: 20060615
  Transmission Date: 20061208
  Serious: Yes (Life-Threatening)
  Sender: FDA-Public Use
  Company Number: JP-SANOFI-SYNTHELABO-A01200604737

PATIENT
  Sex: Male
  Weight: 55 kg

DRUGS (5)
  1. CALCIUM LEVOFOLINATE [Suspect]
     Dosage: 75MG/BODY=48.7MG/M2
     Route: 042
     Dates: start: 20060613, end: 20060613
  2. ALMARL [Concomitant]
     Indication: HYPERTENSION
     Route: 048
  3. OXALIPLATIN [Suspect]
     Indication: COLON CANCER
     Dosage: 80MG/BODY=51.9MG/M2
     Route: 042
     Dates: start: 20060613, end: 20060613
  4. PHENOBAL [Concomitant]
     Indication: EPILEPSY
     Route: 048
     Dates: start: 20050916
  5. FLUOROURACIL [Suspect]
     Dosage: 500MG/BODY=324.7MG/M2 IN BOLUS, 750MG/BODY=487MG/M2 AS INFUSION,D1+2
     Route: 042
     Dates: start: 20060518, end: 20060519

REACTIONS (2)
  - CARDIO-RESPIRATORY ARREST [None]
  - EPILEPSY [None]
